FAERS Safety Report 6274946-6 (Version None)
Quarter: 2009Q3

REPORT INFORMATION
  Report Type: 
  Country: None (occurrence: None)
  Receive Date: 20090721
  Receipt Date: 20090713
  Transmission Date: 20100115
  Serious: Yes (Other)
  Sender: FDA-Public Use
  Company Number: JP-ASTRAZENECA-2009SE04955

PATIENT
  Age: 75 Year
  Sex: Male

DRUGS (1)
  1. MEROPEN [Suspect]
     Indication: PNEUMONIA ASPIRATION
     Dates: start: 20090415, end: 20090416

REACTIONS (1)
  - LIVER DISORDER [None]
